FAERS Safety Report 8969912 (Version 1)
Quarter: 2012Q4

REPORT INFORMATION
  Report Type: 
  Country: US (occurrence: US)
  Receive Date: 20121218
  Receipt Date: 20121218
  Transmission Date: 20130627
  Serious: No
  Sender: FDA-Public Use
  Company Number: US-BRISTOL-MYERS SQUIBB COMPANY-16224768

PATIENT
  Age: 17 Year
  Sex: Female

DRUGS (3)
  1. ABILIFY [Suspect]
     Indication: BIPOLAR DISORDER
     Route: 048
     Dates: start: 20110622, end: 20111123
  2. LITHIUM [Concomitant]
     Route: 048
     Dates: start: 20110315, end: 20110713
  3. PROPANOL [Concomitant]
     Route: 048
     Dates: start: 20110315, end: 20110713

REACTIONS (1)
  - Blood prolactin increased [Unknown]
